FAERS Safety Report 16742254 (Version 1)
Quarter: 2019Q3

REPORT INFORMATION
  Report Type: Spontaneous
  Country: US (occurrence: US)
  Receive Date: 20190826
  Receipt Date: 20190826
  Transmission Date: 20191005
  Serious: Yes (Hospitalization, Other)
  Sender: FDA-Public Use
  Company Number: US-PFIZER INC-2017201730

PATIENT
  Age: 46 Year
  Sex: Male

DRUGS (2)
  1. XELJANZ [Suspect]
     Active Substance: TOFACITINIB CITRATE
     Indication: COLITIS
     Dosage: 20 MG, DAILY (QUANTITY 120 / DAY SUPPLY 30)
  2. XELJANZ [Suspect]
     Active Substance: TOFACITINIB CITRATE
     Dosage: 5 MG, 2X/DAY
     Route: 048
     Dates: start: 201706, end: 20190819

REACTIONS (3)
  - Myocardial infarction [Unknown]
  - Prescribed overdose [Unknown]
  - Coagulopathy [Unknown]

NARRATIVE: CASE EVENT DATE: 20190506
